FAERS Safety Report 20249039 (Version 2)
Quarter: 2022Q3

REPORT INFORMATION
  Report Type: Spontaneous
  Country: JP (occurrence: JP)
  Receive Date: 20211229
  Receipt Date: 20220802
  Transmission Date: 20221026
  Serious: No
  Sender: FDA-Public Use
  Company Number: JP-DSJP-DSJ-2021-143488

PATIENT
  Age: 91 Year
  Sex: Female

DRUGS (1)
  1. EDOXABAN TOSYLATE [Suspect]
     Active Substance: EDOXABAN TOSYLATE
     Indication: Atrial fibrillation
     Dosage: 15MG/DAY
     Route: 065

REACTIONS (1)
  - Creatinine renal clearance decreased [Not Recovered/Not Resolved]
